FAERS Safety Report 8414961-7 (Version None)
Quarter: 2012Q2

REPORT INFORMATION
  Report Type: 
  Country: None (occurrence: None)
  Receive Date: 20120606
  Receipt Date: 20120529
  Transmission Date: 20120825
  Serious: Yes (Death, Hospitalization)
  Sender: FDA-Public Use
  Company Number: US-SHIRE-ALL1-2012-02673

PATIENT
  Sex: Female
  Weight: 58 kg

DRUGS (2)
  1. FOSRENOL [Suspect]
     Indication: HYPERPHOSPHATAEMIA
     Dosage: 2000 MG, 3X/DAY:TID, TAKEN AS TWO 1000 MG TABLETS
     Route: 048
     Dates: start: 20120201
  2. FOSRENOL [Suspect]
     Indication: RENAL FAILURE CHRONIC

REACTIONS (4)
  - CONDITION AGGRAVATED [None]
  - HYPERTENSION [None]
  - UNRESPONSIVE TO STIMULI [None]
  - OVERDOSE [None]
